FAERS Safety Report 4712758-2 (Version None)
Quarter: 2005Q3

REPORT INFORMATION
  Report Type: 
  Country: None (occurrence: None)
  Receive Date: 20050701
  Receipt Date: 20050329
  Transmission Date: 20060218
  Serious: Yes (Hospitalization, Other)
  Sender: FDA-Public Use
  Company Number: 2005040708

PATIENT
  Age: 37 Year
  Sex: Female

DRUGS (5)
  1. ZOLOFT [Suspect]
     Indication: MAJOR DEPRESSION
     Dosage: 25 MG (25 MG, 1 IN 1 D), ORAL
     Route: 048
     Dates: start: 20040902, end: 20040912
  2. METHYLPHENIDATE HYDROCHLORIDE (METHYPHENIDATE HYDROCHLORIDE) [Concomitant]
  3. FLUOXETINE HCL [Concomitant]
  4. ALPRAZOLAM [Concomitant]
  5. BUPROPION HYDROCHLORIDE [Concomitant]

REACTIONS (1)
  - STEVENS-JOHNSON SYNDROME [None]
